FAERS Safety Report 15676999 (Version 1)
Quarter: 2018Q4

REPORT INFORMATION
  Report Type: Spontaneous
  Country: US (occurrence: US)
  Receive Date: 20181130
  Receipt Date: 20181130
  Transmission Date: 20190205
  Serious: Yes (Other)
  Sender: FDA-Public Use
  Company Number: US-SIGMAPHARM LABORATORIES, LLC-2018SIG00070

PATIENT
  Sex: Female
  Weight: 72.57 kg

DRUGS (3)
  1. LIOTHYRONINE SODIUM. [Suspect]
     Active Substance: LIOTHYRONINE SODIUM
     Dosage: 25 ?G, 2X/DAY 12 HOURS APART
     Dates: start: 20180924, end: 20181115
  2. LIOTHYRONINE (MAYNE) [Concomitant]
     Dosage: 25 ?G, 2X/DAY 12 HOURS APART
     Dates: start: 20180924
  3. LIOTHYRONINE [Concomitant]
     Active Substance: LIOTHYRONINE
     Dosage: 5 ?G, 3X/WEEK AT BEDTIME

REACTIONS (8)
  - Nervousness [Recovered/Resolved]
  - Dyspnoea [Recovered/Resolved]
  - Heart rate increased [Recovered/Resolved]
  - Blood pressure increased [Recovered/Resolved]
  - Swelling face [Recovered/Resolved]
  - Respiratory tract congestion [Recovered/Resolved]
  - Chest discomfort [Recovered/Resolved]
  - Reaction to preservatives [Recovered/Resolved]

NARRATIVE: CASE EVENT DATE: 2018
